FAERS Safety Report 8599835-3 (Version None)
Quarter: 2012Q3

REPORT INFORMATION
  Report Type: 
  Country: None (occurrence: None)
  Receive Date: 20120816
  Receipt Date: 20120809
  Transmission Date: 20120928
  Serious: Yes (Other)
  Sender: FDA-Public Use
  Company Number: BR-JNJFOC-20120504511

PATIENT
  Sex: Female

DRUGS (2)
  1. OTHER THERAPEUTIC PRODUCTS [Suspect]
     Indication: PROPHYLAXIS
     Route: 050
  2. QUIXIL [Suspect]
     Indication: PROPHYLAXIS
     Route: 050

REACTIONS (2)
  - OFF LABEL USE [None]
  - SEROMA [None]
